FAERS Safety Report 6039003-2 (Version None)
Quarter: 2009Q1

REPORT INFORMATION
  Report Type: 
  Country: None (occurrence: None)
  Receive Date: 20090115
  Receipt Date: 20090109
  Transmission Date: 20090719
  Serious: Yes (Hospitalization)
  Sender: FDA-Public Use
  Company Number: BR-ASTRAZENECA-2009UW00967

PATIENT
  Age: 38 Year
  Sex: Female
  Weight: 70 kg

DRUGS (4)
  1. SEROQUEL [Suspect]
     Route: 048
  2. ALCOHOL [Suspect]
  3. CITALOPRAM HYDROBROMIDE [Concomitant]
  4. LITHIUM CARBONATE [Concomitant]
     Route: 048

REACTIONS (3)
  - CONFUSIONAL STATE [None]
  - HYPOTENSION [None]
  - SOPOR [None]
